FAERS Safety Report 19307719 (Version 1)
Quarter: 2021Q2

REPORT INFORMATION
  Report Type: Spontaneous
  Country: US (occurrence: US)
  Receive Date: 20210525
  Receipt Date: 20210525
  Transmission Date: 20210717
  Serious: No
  Sender: FDA-Public Use
  Company Number: US-PURDUE PHARMA-USA-2021-0236911

PATIENT
  Sex: Female
  Weight: 61.23 kg

DRUGS (1)
  1. OXYCODONE HYDROCHLORIDE (SIMILAR TO NDA 22?272) [Suspect]
     Active Substance: OXYCODONE HYDROCHLORIDE
     Indication: PAIN
     Dosage: 5/325 MG, QID PRN
     Route: 048
     Dates: start: 20210310

REACTIONS (3)
  - Peripheral swelling [Recovering/Resolving]
  - Unevaluable event [Unknown]
  - Inadequate analgesia [Recovering/Resolving]
